FAERS Safety Report 5964780-6 (Version None)
Quarter: 2008Q4

REPORT INFORMATION
  Report Type: 
  Country: None (occurrence: None)
  Receive Date: 20081125
  Receipt Date: 20080403
  Transmission Date: 20090506
  Serious: No
  Sender: FDA-Public Use
  Company Number: US-BAYER-200811493BCC

PATIENT
  Sex: Female

DRUGS (1)
  1. MIDOL (FORMULATION NOT SPECIFIED) [Suspect]
     Indication: HEADACHE
     Dosage: AS USED: 200 MG  UNIT DOSE: 200 MG

REACTIONS (2)
  - HEADACHE [None]
  - SOMNOLENCE [None]
